FAERS Safety Report 12473246 (Version 1)
Quarter: 2016Q2

REPORT INFORMATION
  Report Type: Spontaneous
  Country: US (occurrence: US)
  Receive Date: 20160616
  Receipt Date: 20160616
  Transmission Date: 20160815
  Serious: Yes (Life-Threatening)
  Sender: FDA-Public Use
  Company Number: US-PFIZER INC-2016297496

PATIENT
  Age: 46 Year
  Sex: Male

DRUGS (1)
  1. ADENOSINE PHOSPHATE [Suspect]
     Active Substance: ADENOSINE PHOSPHATE
     Indication: PALPITATIONS
     Dosage: UNK

REACTIONS (1)
  - Ventricular fibrillation [Recovered/Resolved]
